FAERS Safety Report 18147411 (Version 1)
Quarter: 2020Q3

REPORT INFORMATION
  Report Type: Report from Study
  Country: IL (occurrence: IL)
  Receive Date: 20200813
  Receipt Date: 20200813
  Transmission Date: 20201103
  Serious: Yes (Other)
  Sender: FDA-Public Use
  Company Number: IL-JNJFOC-20200807876

PATIENT

DRUGS (1)
  1. DARATUMUMAB [Suspect]
     Active Substance: DARATUMUMAB
     Indication: PLASMA CELL MYELOMA
     Route: 042

REACTIONS (4)
  - Neutropenia [Unknown]
  - Respiratory tract infection [Unknown]
  - Hypogammaglobulinaemia [Unknown]
  - Infection [Unknown]
